FAERS Safety Report 8993005 (Version 1)
Quarter: 2013Q1

REPORT INFORMATION
  Report Type: Spontaneous
  Country: US (occurrence: US)
  Receive Date: 20130102
  Receipt Date: 20130102
  Transmission Date: 20140127
  Serious: Yes (Hospitalization, Disabling)
  Sender: FDA-Public Use
  Company Number: PHEH2012US025609

PATIENT
  Age: 68 Year
  Sex: Female

DRUGS (14)
  1. AFINITOR [Suspect]
     Indication: SMALL INTESTINE CARCINOMA
     Dosage: 10 MG, QD
     Route: 048
     Dates: start: 20120815
  2. ALLOPURINOL [Concomitant]
     Dosage: 100 MG, UNK
     Dates: start: 20121108
  3. LEVOTHYROXIN [Concomitant]
     Dosage: UNK
     Dates: start: 20121108
  4. METFORMIN [Concomitant]
     Dosage: 100 MG, UNK
     Dates: start: 20121108
  5. LANTUS [Concomitant]
     Dosage: 100 ML, UNK
     Dates: start: 20121108
  6. NAXIM [Concomitant]
     Dosage: 20 MG, UNK
  7. PREMARIN [Concomitant]
     Dosage: 0.3 MG, UNK
     Dates: start: 20121108
  8. CREON [Concomitant]
  9. SANDOSTATIN [Concomitant]
  10. BOOST [Concomitant]
  11. CITALOPRAM [Concomitant]
     Dosage: 10 MG, DAILY
  12. SANDOSTATIN LAR [Concomitant]
  13. MEGASTROL [Concomitant]
     Dosage: 400 MG, DAILY
  14. VITAMIN D [Concomitant]

REACTIONS (1)
  - Cerebrovascular accident [Not Recovered/Not Resolved]
